FAERS Safety Report 13757610 (Version 1)
Quarter: 2017Q3

REPORT INFORMATION
  Report Type: Report from Study
  Country: IT (occurrence: IT)
  Receive Date: 20170717
  Receipt Date: 20170717
  Transmission Date: 20171127
  Serious: Yes (Other)
  Sender: FDA-Public Use
  Company Number: IT-CIPLA LTD.-2017IT12168

PATIENT

DRUGS (5)
  1. GEMCITABINE [Suspect]
     Active Substance: GEMCITABINE\GEMCITABINE HYDROCHLORIDE
     Indication: LUNG SQUAMOUS CELL CARCINOMA STAGE III
     Dosage: 1000 MG/M2, ON DAYS 1 AND 8 IN 250 CC SALINE SOLUTION OVER 30 MINUTES, EVERY 21 DAYS
     Route: 042
  2. DEXAMETHASONE. [Concomitant]
     Active Substance: DEXAMETHASONE
     Indication: PREMEDICATION
     Dosage: 8 MG, 15 MIN BEFORE THE CHEMOTHERAPY OF DAYS 1 AND 8
     Route: 042
  3. ONDANSETRON [Concomitant]
     Active Substance: ONDANSETRON
     Indication: PREMEDICATION
     Dosage: 8 MG, 15 MIN BEFORE THE CHEMOTHERAPY OF DAYS 1 AND 8
     Route: 042
  4. RANITIDINE. [Concomitant]
     Active Substance: RANITIDINE
     Indication: PREMEDICATION
     Dosage: 100 MG, 15 MIN BEFORE THE CHEMOTHERAPY OF DAYS 1 AND 8
     Route: 042
  5. CARBOPLATIN. [Suspect]
     Active Substance: CARBOPLATIN
     Indication: LUNG SQUAMOUS CELL CARCINOMA STAGE III
     Dosage: AUC 5, ON DAY 1, EVERY 21 DAYS, IN 500 CC SALINE SOLUTION OVER 1 HOUR
     Route: 042

REACTIONS (1)
  - Disease progression [Unknown]
